FAERS Safety Report 6652997-7 (Version None)
Quarter: 2010Q1

REPORT INFORMATION
  Report Type: 
  Country: None (occurrence: None)
  Receive Date: 20100326
  Receipt Date: 20100315
  Transmission Date: 20100710
  Serious: Yes (Other)
  Sender: FDA-Public Use
  Company Number: US-WYE-H14118310

PATIENT
  Sex: Female

DRUGS (7)
  1. PRISTIQ [Suspect]
     Indication: NARCOLEPSY
     Route: 048
     Dates: start: 20091207, end: 20091213
  2. PRISTIQ [Suspect]
     Indication: CATAPLEXY
  3. LOVASTATIN [Concomitant]
  4. ALENDRONATE SODIUM [Concomitant]
     Indication: OSTEOPOROSIS
     Dosage: UNKNOWN
  5. LISINOPRIL [Concomitant]
     Indication: HYPERTENSION
     Dosage: UNKNOWN
  6. PROVIGIL [Concomitant]
     Indication: NARCOLEPSY
  7. METFORMIN HYDROCHLORIDE [Concomitant]
     Indication: DIABETES MELLITUS
     Dosage: 500 MG, FREQUENCY UNKNOWN

REACTIONS (4)
  - AMNESIA [None]
  - APHASIA [None]
  - DREAMY STATE [None]
  - LOSS OF CONSCIOUSNESS [None]
